FAERS Safety Report 10184656 (Version 4)
Quarter: 2016Q3

REPORT INFORMATION
  Report Type: Other
  Country: GB (occurrence: GB)
  Receive Date: 20140521
  Receipt Date: 20160823
  Transmission Date: 20161108
  Serious: Yes (Other)
  Sender: FDA-Public Use
  Company Number: GB-SHIRE-GB201402319

PATIENT
  Sex: Male

DRUGS (3)
  1. VPRIV [Suspect]
     Active Substance: VELAGLUCERASE ALFA
     Indication: GAUCHER^S DISEASE
     Dosage: 400 IU, UNKNOWN
     Route: 041
  2. VPRIV [Suspect]
     Active Substance: VELAGLUCERASE ALFA
     Dosage: 2400 IU, UNKNOWN
     Route: 041
  3. VPRIV [Suspect]
     Active Substance: VELAGLUCERASE ALFA
     Dosage: 2000 IU, 1X/2WKS
     Route: 041

REACTIONS (3)
  - Metastasis [Not Recovered/Not Resolved]
  - Gastric cancer [Not Recovered/Not Resolved]
  - Oesophageal carcinoma [Recovering/Resolving]
